FAERS Safety Report 9708461 (Version 1)
Quarter: 2013Q4

REPORT INFORMATION
  Report Type: Spontaneous
  Country: US (occurrence: US)
  Receive Date: 20131125
  Receipt Date: 20131125
  Transmission Date: 20140711
  Serious: Yes (Other)
  Sender: FDA-Public Use
  Company Number: US-TEVA-445969USA

PATIENT
  Age: 33 Year
  Sex: Female
  Weight: 96.7 kg

DRUGS (8)
  1. PARAGARD 380A [Suspect]
     Indication: CONTRACEPTION
     Route: 015
     Dates: start: 20131118, end: 20131119
  2. CYCLOBENZAPRINE [Concomitant]
     Route: 048
  3. DIAZEPAM [Concomitant]
     Route: 048
  4. LAMOTRIGINE [Concomitant]
     Dosage: ONCE
     Route: 048
  5. OMEPRAZOLE [Concomitant]
     Dosage: 40 MILLIGRAM DAILY;
     Route: 048
  6. LEVOTHYROXINE SODIUM [Concomitant]
     Dosage: 50 MICROGRAM DAILY;
     Route: 048
  7. CYANOCOBALAMIN [Concomitant]
     Dosage: 1000 MICROGRAM DAILY;
     Route: 048
  8. COLECALCIFEROL [Concomitant]
     Dosage: 1 DOSAGE FORMS DAILY; 10000 UNITS

REACTIONS (1)
  - Device dislocation [Recovered/Resolved]
